FAERS Safety Report 7383172-9 (Version None)
Quarter: 2011Q1

REPORT INFORMATION
  Report Type: 
  Country: None (occurrence: None)
  Receive Date: 20110330
  Receipt Date: 20110322
  Transmission Date: 20110831
  Serious: Yes (Hospitalization)
  Sender: FDA-Public Use
  Company Number: US-NOVOPROD-323564

PATIENT
  Sex: Female
  Weight: 56.689 kg

DRUGS (3)
  1. NOVOLOG [Suspect]
     Indication: TYPE 1 DIABETES MELLITUS
     Dosage: UNK
     Route: 058
  2. NOVOLOG [Suspect]
     Dosage: UNK
  3. AVAPRO [Concomitant]
     Indication: HYPERTENSION

REACTIONS (2)
  - DEHYDRATION [None]
  - BLOOD GLUCOSE INCREASED [None]
